FAERS Safety Report 21279140 (Version 2)
Quarter: 2022Q3

REPORT INFORMATION
  Report Type: Spontaneous
  Country: BY (occurrence: BY)
  Receive Date: 20220901
  Receipt Date: 20220916
  Transmission Date: 20221026
  Serious: Yes (Life-Threatening)
  Sender: FDA-Public Use
  Company Number: BY-JNJFOC-20220857608

PATIENT
  Age: 46 Year
  Sex: Male
  Weight: 58 kg

DRUGS (11)
  1. SIRTURO [Suspect]
     Active Substance: BEDAQUILINE FUMARATE
     Indication: Tuberculosis
     Dosage: 2 WEEKS
     Route: 048
     Dates: start: 20220404
  2. SIRTURO [Suspect]
     Active Substance: BEDAQUILINE FUMARATE
     Route: 048
     Dates: end: 20220823
  3. PARA-AMINOSALICYLIC ACID [Suspect]
     Active Substance: AMINOSALICYLIC ACID
     Indication: Tuberculosis
     Route: 048
     Dates: start: 20220404
  4. LINEZOLID [Suspect]
     Active Substance: LINEZOLID
     Indication: Tuberculosis
     Route: 048
     Dates: start: 20220404
  5. MOXIFLOXACIN [Suspect]
     Active Substance: MOXIFLOXACIN
     Indication: Tuberculosis
     Route: 048
     Dates: start: 20220404, end: 20220506
  6. CLOFAZIMINE [Suspect]
     Active Substance: CLOFAZIMINE
     Indication: Tuberculosis
     Route: 048
     Dates: start: 20220506, end: 20220826
  7. DOLUTEGRAVIR [Concomitant]
     Active Substance: DOLUTEGRAVIR
     Indication: HIV infection
     Route: 048
     Dates: start: 20220328, end: 20220712
  8. DOLUTEGRAVIR [Concomitant]
     Active Substance: DOLUTEGRAVIR
     Route: 048
     Dates: start: 20220818
  9. TRUVADA [Concomitant]
     Active Substance: EMTRICITABINE\TENOFOVIR DISOPROXIL FUMARATE
     Indication: HIV infection
     Dosage: 300/200 MG
     Route: 048
     Dates: start: 20220328, end: 20220712
  10. COTRIMOXAZOLE [Concomitant]
     Active Substance: SULFAMETHOXAZOLE\TRIMETHOPRIM
     Indication: HIV infection
     Route: 048
     Dates: start: 20220328, end: 20220712
  11. LOPINAVIR\RITONAVIR [Concomitant]
     Active Substance: LOPINAVIR\RITONAVIR
     Indication: HIV infection
     Dosage: 200/50 MG
     Route: 048
     Dates: start: 20220818

REACTIONS (1)
  - Electrocardiogram QT prolonged [Recovered/Resolved]

NARRATIVE: CASE EVENT DATE: 20220823
